FAERS Safety Report 6757085-7 (Version None)
Quarter: 2010Q2

REPORT INFORMATION
  Report Type: 
  Country: None (occurrence: None)
  Receive Date: 20100604
  Receipt Date: 20100601
  Transmission Date: 20101027
  Serious: Yes (Hospitalization)
  Sender: FDA-Public Use
  Company Number: CA-MERCK-1006USA00233

PATIENT
  Age: 59 Year
  Sex: Male
  Weight: 87 kg

DRUGS (8)
  1. JANUVIA [Suspect]
     Route: 048
  2. ASPIRIN [Concomitant]
     Route: 065
  3. CNC VITAMOST ULTRAGEST [Concomitant]
     Route: 065
  4. BISOPROLOL [Concomitant]
     Route: 065
  5. FENOFIBRATE [Concomitant]
     Route: 065
  6. METFORMIN [Concomitant]
     Route: 065
  7. RAMIPRIL [Concomitant]
     Route: 065
  8. CRESTOR [Concomitant]
     Route: 065

REACTIONS (7)
  - ACUTE CORONARY SYNDROME [None]
  - ELECTROCARDIOGRAM ABNORMAL [None]
  - PNEUMONIA [None]
  - PROSTATITIS [None]
  - PYREXIA [None]
  - TROPONIN INCREASED [None]
  - URINARY TRACT INFECTION [None]
